FAERS Safety Report 19145495 (Version 1)
Quarter: 2021Q2

REPORT INFORMATION
  Report Type: Spontaneous
  Country: CN (occurrence: CN)
  Receive Date: 20210416
  Receipt Date: 20210416
  Transmission Date: 20210717
  Serious: Yes (Other)
  Sender: FDA-Public Use
  Company Number: CN-PFIZER INC-2021373530

PATIENT
  Age: 59 Year
  Sex: Male
  Weight: 50 kg

DRUGS (5)
  1. MEPEM [MEROPENEM] [Suspect]
     Active Substance: MEROPENEM
     Indication: SEPSIS
  2. ZYVOX [Suspect]
     Active Substance: LINEZOLID
     Indication: SEPSIS
  3. SODIUM CHLORIDE. [Concomitant]
     Active Substance: SODIUM CHLORIDE
     Indication: VEHICLE SOLUTION USE
     Dosage: 100 ML, 2X/DAY
     Route: 041
     Dates: start: 20210327, end: 20210330
  4. ZYVOX [Suspect]
     Active Substance: LINEZOLID
     Indication: PNEUMONIA
     Dosage: 0.6 G, 2X/DAY
     Route: 048
     Dates: start: 20210329, end: 20210330
  5. MEPEM [MEROPENEM] [Suspect]
     Active Substance: MEROPENEM
     Indication: PNEUMONIA
     Dosage: 0.5 G, 2X/DAY
     Route: 041
     Dates: start: 20210327, end: 20210330

REACTIONS (5)
  - Face oedema [Recovered/Resolved]
  - Circumoral oedema [Recovered/Resolved]
  - Rash [Recovered/Resolved]
  - Lip oedema [Recovered/Resolved]
  - Hypersensitivity [Recovered/Resolved]

NARRATIVE: CASE EVENT DATE: 20210329
